FAERS Safety Report 20803074 (Version 1)
Quarter: 2022Q2

REPORT INFORMATION
  Report Type: Spontaneous
  Country: US (occurrence: US)
  Receive Date: 20220509
  Receipt Date: 20220509
  Transmission Date: 20220721
  Serious: Yes (Other)
  Sender: FDA-Public Use
  Company Number: US-PFIZER INC-202200672857

PATIENT
  Sex: Female

DRUGS (4)
  1. PAXLOVID [Interacting]
     Active Substance: NIRMATRELVIR\RITONAVIR
     Indication: COVID-19 treatment
     Dosage: UNK
  2. DOXYCYCLINE HYCLATE [Interacting]
     Active Substance: DOXYCYCLINE HYCLATE
     Dosage: UNK
  3. ACYCLOVIR [Interacting]
     Active Substance: ACYCLOVIR
     Dosage: UNK
  4. LISINOPRIL [Interacting]
     Active Substance: LISINOPRIL
     Dosage: UNK

REACTIONS (2)
  - Drug interaction [Unknown]
  - Pneumonia [Not Recovered/Not Resolved]
